FAERS Safety Report 9814998 (Version 1)
Quarter: 2014Q1

REPORT INFORMATION
  Report Type: Spontaneous
  Country: US (occurrence: US)
  Receive Date: 20140114
  Receipt Date: 20140114
  Transmission Date: 20141002
  Serious: Yes (Hospitalization)
  Sender: FDA-Public Use
  Company Number: US-ROCHE-1332371

PATIENT
  Sex: Female
  Weight: 94.43 kg

DRUGS (4)
  1. XOLAIR [Suspect]
     Indication: ASTHMA
     Route: 058
     Dates: start: 2013
  2. ADVAIR [Concomitant]
     Route: 065
  3. ALBUTEROL NEBULIZER [Concomitant]
     Route: 065
  4. LOVASTATIN [Concomitant]
     Route: 065

REACTIONS (2)
  - Respiratory disorder [Recovered/Resolved]
  - Vision blurred [Unknown]
